FAERS Safety Report 9174281 (Version 2)
Quarter: 2013Q2

REPORT INFORMATION
  Report Type: Spontaneous
  Country: US (occurrence: US)
  Receive Date: 20130320
  Receipt Date: 20130425
  Transmission Date: 20140414
  Serious: Yes (Death, Other)
  Sender: FDA-Public Use
  Company Number: US-FRI-1000043354

PATIENT
  Age: 83 Year
  Sex: Female

DRUGS (4)
  1. NAMENDA [Suspect]
     Indication: DEMENTIA ALZHEIMER^S TYPE
     Dates: end: 201301
  2. LASIX [Concomitant]
     Indication: OEDEMA
  3. ASPIRIN [Concomitant]
     Indication: CORONARY ARTERY DISEASE
  4. STOOL SOFTENER [Concomitant]
     Indication: CONSTIPATION

REACTIONS (5)
  - Dementia Alzheimer^s type [Fatal]
  - Hostility [Unknown]
  - Agitation [Unknown]
  - Psychotic disorder [Unknown]
  - Paranoia [Unknown]
